FAERS Safety Report 15661787 (Version 4)
Quarter: 2019Q1

REPORT INFORMATION
  Report Type: Report from Study
  Country: US (occurrence: US)
  Receive Date: 20181127
  Receipt Date: 20190207
  Transmission Date: 20190417
  Serious: Yes (Other)
  Sender: FDA-Public Use
  Company Number: US-MALLINCKRODT-T201803859

PATIENT
  Age: 55 Year
  Sex: Female

DRUGS (6)
  1. REPOSITORY CORTICOTROPIN INJECTION [Suspect]
     Active Substance: CORTICOTROPIN
     Dosage: 40 UNITS/.5 ML, 3X WEEKLY
     Route: 058
     Dates: start: 20180828, end: 2018
  2. REPOSITORY CORTICOTROPIN INJECTION [Suspect]
     Active Substance: CORTICOTROPIN
     Dosage: 40 UNITS/.5 ML, 2 TIMES PER WEEK (MONDAY, WEDNESDAY)
     Route: 058
     Dates: start: 2018, end: 2018
  3. REPOSITORY CORTICOTROPIN INJECTION [Suspect]
     Active Substance: CORTICOTROPIN
     Dosage: 40 UNITS/.5 ML, 2 TIMES PER WEEK (MONDAY, FRIDAY)
     Route: 058
     Dates: start: 2018, end: 20181107
  4. HUMIRA [Suspect]
     Active Substance: ADALIMUMAB
     Dosage: UNK
     Route: 065
     Dates: start: 20181029, end: 2018
  5. HUMIRA [Suspect]
     Active Substance: ADALIMUMAB
     Indication: RHEUMATOID ARTHRITIS
     Dosage: UNK
     Route: 065
     Dates: start: 2018, end: 2018
  6. REPOSITORY CORTICOTROPIN INJECTION [Suspect]
     Active Substance: CORTICOTROPIN
     Indication: SARCOIDOSIS
     Dosage: 80 UNITS/1 ML, THREE TIMES WEEKLY
     Route: 058
     Dates: start: 20180813, end: 201808

REACTIONS (26)
  - Immune system disorder [Not Recovered/Not Resolved]
  - Rheumatoid arthritis [Not Recovered/Not Resolved]
  - Product dose omission [Unknown]
  - Visual impairment [Not Recovered/Not Resolved]
  - Memory impairment [Not Recovered/Not Resolved]
  - Vomiting [Recovered/Resolved]
  - Nausea [Unknown]
  - Skin disorder [Unknown]
  - Sensitivity to weather change [Not Recovered/Not Resolved]
  - Impaired healing [Not Recovered/Not Resolved]
  - Mood altered [Recovering/Resolving]
  - Condition aggravated [Not Recovered/Not Resolved]
  - Bladder mass [Not Recovered/Not Resolved]
  - Dry eye [Not Recovered/Not Resolved]
  - Pancreatic disorder [Unknown]
  - Malaise [Unknown]
  - Diarrhoea [Unknown]
  - Wrong technique in product usage process [Recovering/Resolving]
  - Swelling of eyelid [Unknown]
  - Eye discharge [Unknown]
  - Fatigue [Unknown]
  - Drug ineffective [Not Recovered/Not Resolved]
  - Eye haemorrhage [Not Recovered/Not Resolved]
  - Pulmonary mass [Not Recovered/Not Resolved]
  - Sarcoidosis [Unknown]
  - Urinary tract infection [Not Recovered/Not Resolved]

NARRATIVE: CASE EVENT DATE: 2018
